FAERS Safety Report 11343231 (Version 9)
Quarter: 2016Q3

REPORT INFORMATION
  Report Type: Spontaneous
  Country: GB (occurrence: GB)
  Receive Date: 20150806
  Receipt Date: 20160830
  Transmission Date: 20161109
  Serious: Yes (Hospitalization, Other)
  Sender: FDA-Public Use
  Company Number: GB-DRREDDYS-GER/UKI/15/0049742

PATIENT
  Age: 77 Year
  Sex: Female

DRUGS (14)
  1. XGEVA [Concomitant]
     Active Substance: DENOSUMAB
     Indication: METASTASES TO BONE
  2. CIPROFLOXACIN. [Concomitant]
     Active Substance: CIPROFLOXACIN
     Indication: PRODUCT USED FOR UNKNOWN INDICATION
  3. DOCETAXEL. [Suspect]
     Active Substance: DOCETAXEL
     Indication: PRODUCT USED FOR UNKNOWN INDICATION
  4. HERCEPTIN [Suspect]
     Active Substance: TRASTUZUMAB
     Indication: PRODUCT USED FOR UNKNOWN INDICATION
     Dosage: CYCLE 2
     Route: 058
  5. PERTUZUMAB [Suspect]
     Active Substance: PERTUZUMAB
     Indication: PRODUCT USED FOR UNKNOWN INDICATION
     Dosage: CYCLE 8, CYCLE 10
     Route: 065
  6. METOCLOPRAMIDE. [Concomitant]
     Active Substance: METOCLOPRAMIDE
     Indication: NAUSEA
  7. MACROGOL [Concomitant]
     Active Substance: POLYETHYLENE GLYCOLS
     Indication: CONSTIPATION
  8. DOXYCYCLINE. [Concomitant]
     Active Substance: DOXYCYCLINE
     Indication: PRODUCT USED FOR UNKNOWN INDICATION
  9. STEROIDS [Concomitant]
     Active Substance: UNSPECIFIED INGREDIENT
     Indication: PRODUCT USED FOR UNKNOWN INDICATION
     Dates: start: 20150728
  10. MOVICOL [Concomitant]
     Active Substance: POLYETHYLENE GLYCOL 3350\POTASSIUM CHLORIDE\SODIUM BICARBONATE\SODIUM CHLORIDE
     Indication: CONSTIPATION
  11. INHALERS [Concomitant]
     Active Substance: UNSPECIFIED INGREDIENT
     Indication: CHEST DISCOMFORT
  12. NEULASTA [Suspect]
     Active Substance: PEGFILGRASTIM
     Indication: PRODUCT USED FOR UNKNOWN INDICATION
     Dates: start: 20150730
  13. GELCLAIR [Concomitant]
     Indication: ORAL PAIN
  14. ANTIBIOTICS [Concomitant]
     Active Substance: UNSPECIFIED INGREDIENT
     Indication: PRODUCT USED FOR UNKNOWN INDICATION
     Route: 048

REACTIONS (51)
  - Irritable bowel syndrome [Not Recovered/Not Resolved]
  - Micturition urgency [Recovered/Resolved]
  - Oral pain [Unknown]
  - Alopecia [Recovered/Resolved]
  - Device dislocation [Unknown]
  - Arthralgia [Unknown]
  - Musculoskeletal discomfort [Unknown]
  - Lower respiratory tract infection [Unknown]
  - Lethargy [Unknown]
  - Tongue coated [Unknown]
  - Glossodynia [Unknown]
  - Pollakiuria [Recovered/Resolved]
  - Paraesthesia [Unknown]
  - Dyspnoea [Recovered/Resolved]
  - Decreased appetite [Recovering/Resolving]
  - Nausea [Recovered/Resolved]
  - Hypoaesthesia [Unknown]
  - Asthenia [Unknown]
  - Sensory disturbance [Unknown]
  - Seroma [Unknown]
  - Onychoclasis [Unknown]
  - Vascular fragility [Unknown]
  - Feeling abnormal [Unknown]
  - Bone pain [Unknown]
  - Productive cough [Recovered/Resolved]
  - Anxiety [Unknown]
  - Cellulitis [Recovered/Resolved]
  - Chronic obstructive pulmonary disease [Unknown]
  - Cough [Recovered/Resolved]
  - Vaginal prolapse [Unknown]
  - Fatigue [Unknown]
  - Diarrhoea [Unknown]
  - Hypophagia [Unknown]
  - Contusion [Unknown]
  - Vein disorder [Unknown]
  - Influenza like illness [Unknown]
  - Pain in extremity [Unknown]
  - Dyspnoea exertional [Unknown]
  - Urinary tract infection [Unknown]
  - Insomnia [Unknown]
  - Oral candidiasis [Unknown]
  - Ulcer [Unknown]
  - Breast mass [Unknown]
  - Paraesthesia oral [Unknown]
  - Scar [Unknown]
  - Headache [Unknown]
  - Gingival pain [Unknown]
  - Chest discomfort [Recovering/Resolving]
  - Constipation [Recovering/Resolving]
  - Dysgeusia [Unknown]
  - Mastectomy [Unknown]

NARRATIVE: CASE EVENT DATE: 20150730
